FAERS Safety Report 11321682 (Version 1)
Quarter: 2015Q3

REPORT INFORMATION
  Report Type: Spontaneous
  Country: SE (occurrence: SE)
  Receive Date: 20150729
  Receipt Date: 20150729
  Transmission Date: 20151125
  Serious: Yes (Hospitalization)
  Sender: FDA-Public Use
  Company Number: SE-HOSPIRA-2835196

PATIENT
  Age: 35 Year
  Sex: Female

DRUGS (2)
  1. PAXENE                             /01116001/ [Suspect]
     Active Substance: PACLITAXEL
     Indication: BREAST CANCER
     Dates: start: 2008
  2. ZOMETA [Suspect]
     Active Substance: ZOLEDRONIC ACID
     Indication: BREAST CANCER
     Dates: start: 2008

REACTIONS (2)
  - C-reactive protein increased [Unknown]
  - Pyrexia [Recovered/Resolved]
